FAERS Safety Report 4955170-3 (Version None)
Quarter: 2006Q1

REPORT INFORMATION
  Report Type: 
  Country: None (occurrence: None)
  Receive Date: 20060328
  Receipt Date: 20051221
  Transmission Date: 20060701
  Serious: Yes (Other)
  Sender: FDA-Public Use
  Company Number: PHEH2005US13736

PATIENT
  Age: 39 Year
  Sex: Female

DRUGS (6)
  1. RITALIN LA [Suspect]
     Indication: SOMNOLENCE
     Dosage: 40 MG, QD
     Route: 048
     Dates: start: 20051101
  2. ADDERALL XR 10 [Suspect]
     Indication: SOMNOLENCE
     Dosage: 20 MG, QD
     Route: 048
     Dates: start: 20051101
  3. ADDERALL 10 [Concomitant]
     Indication: NARCOLEPSY
     Dosage: 40 MG, QD
     Route: 048
     Dates: start: 19970101, end: 20051101
  4. RITALIN [Concomitant]
     Indication: NARCOLEPSY
     Dosage: 80 MG, QD
     Route: 048
     Dates: start: 19970101, end: 20051101
  5. KLONOPIN [Concomitant]
     Indication: NARCOLEPSY
     Dosage: 4 MG, QD
     Route: 048
     Dates: start: 20020101
  6. REMERON [Concomitant]
     Indication: SLEEP DISORDER
     Dosage: 30 MG, QD
     Route: 048
     Dates: start: 20020101

REACTIONS (8)
  - ANOREXIA [None]
  - APHAGIA [None]
  - CATATONIA [None]
  - CONVULSION [None]
  - HYPERHIDROSIS [None]
  - NARCOLEPSY [None]
  - NAUSEA [None]
  - SARCOIDOSIS [None]
